FAERS Safety Report 7052613-9 (Version None)
Quarter: 2010Q4

REPORT INFORMATION
  Report Type: 
  Country: None (occurrence: None)
  Receive Date: 20101019
  Receipt Date: 20101012
  Transmission Date: 20110411
  Serious: Yes (Other)
  Sender: FDA-Public Use
  Company Number: US-PFIZER INC-2010130182

PATIENT
  Sex: Male
  Weight: 67.574 kg

DRUGS (7)
  1. CHANTIX [Suspect]
     Indication: SMOKING CESSATION THERAPY
     Dosage: 1 MG, 2X/DAY
     Route: 048
     Dates: start: 20090301, end: 20090901
  2. XANAX [Interacting]
     Indication: PANIC ATTACK
     Dosage: 1 MG, UNK
     Route: 048
  3. METFORMIN HCL [Interacting]
     Dosage: 1000 MG, 2X/DAY
  4. LISINOPRIL [Interacting]
     Dosage: 10 MG, DAILY
  5. TRAZODONE [Interacting]
     Indication: INSOMNIA
     Dosage: 150 MG, DAILY
  6. SIMVASTATIN [Interacting]
     Indication: BLOOD CHOLESTEROL INCREASED
     Dosage: 40 MG, UNK
  7. IRON [Interacting]
     Dosage: 325 MG, UNK

REACTIONS (2)
  - DRUG INTERACTION [None]
  - PARANOIA [None]
